FAERS Safety Report 23062887 (Version 1)
Quarter: 2023Q4

REPORT INFORMATION
  Report Type: Spontaneous
  Country: RU (occurrence: RU)
  Receive Date: 20231013
  Receipt Date: 20231013
  Transmission Date: 20240110
  Serious: Yes (Hospitalization, Other)
  Sender: FDA-Public Use
  Company Number: RU-STRIDES ARCOLAB LIMITED-2023SP010023

PATIENT
  Age: 10 Month
  Sex: Male
  Weight: 8.3 kg

DRUGS (3)
  1. TACROLIMUS [Suspect]
     Active Substance: TACROLIMUS
     Indication: Immunosuppressant drug therapy
     Dosage: UNK
     Route: 065
  2. TACROLIMUS [Suspect]
     Active Substance: TACROLIMUS
     Indication: Liver transplant
     Dosage: UNK
     Route: 065
  3. URSODIOL [Suspect]
     Active Substance: URSODIOL
     Indication: Hepatitis
     Dosage: UNK
     Route: 065

REACTIONS (19)
  - Large intestine perforation [Recovered/Resolved]
  - Intestinal perforation [Recovered/Resolved]
  - Acute respiratory distress syndrome [Unknown]
  - Dyspepsia [Unknown]
  - Pancytopenia [Unknown]
  - Neutropenia [Unknown]
  - Colitis [Recovered/Resolved]
  - Hypoalbuminaemia [Recovered/Resolved]
  - Thrombocytopenia [Unknown]
  - Swelling face [Unknown]
  - Hypokalaemia [Recovered/Resolved]
  - Acute kidney injury [Unknown]
  - Drug intolerance [Unknown]
  - C-reactive protein increased [Unknown]
  - Anaemia [Unknown]
  - Gastritis [Unknown]
  - Pyrexia [Unknown]
  - Cough [Unknown]
  - Off label use [Unknown]
